FAERS Safety Report 10944458 (Version 1)
Quarter: 2015Q1

REPORT INFORMATION
  Report Type: Spontaneous
  Country: US (occurrence: US)
  Receive Date: 20150323
  Receipt Date: 20150323
  Transmission Date: 20150721
  Serious: No
  Sender: FDA-Public Use
  Company Number: US-ELI_LILLY_AND_COMPANY-US201503001236

PATIENT
  Sex: Female

DRUGS (1)
  1. TRULICITY [Suspect]
     Active Substance: DULAGLUTIDE
     Indication: APPETITE DISORDER
     Dosage: 0.75 MG, WEEKLY (1/W)
     Route: 065
     Dates: start: 20150225

REACTIONS (3)
  - Blood glucose abnormal [Not Recovered/Not Resolved]
  - Dyspepsia [Not Recovered/Not Resolved]
  - Off label use [Unknown]

NARRATIVE: CASE EVENT DATE: 20150225
